FAERS Safety Report 21442907 (Version 2)
Quarter: 2023Q1

REPORT INFORMATION
  Report Type: Report from Study
  Country: US (occurrence: US)
  Receive Date: 20221012
  Receipt Date: 20230206
  Transmission Date: 20230417
  Serious: Yes (Hospitalization)
  Sender: FDA-Public Use
  Company Number: US-ABBVIE-4150966

PATIENT
  Sex: Female

DRUGS (2)
  1. SKYRIZI [Suspect]
     Active Substance: RISANKIZUMAB-RZAA
     Indication: Crohn^s disease
     Dosage: EVERY 8 WEEK 360MG/2.4ML
     Route: 042
     Dates: start: 20221216
  2. SKYRIZI [Suspect]
     Active Substance: RISANKIZUMAB-RZAA
     Dosage: LAST ADMIN DATE 2022
     Route: 042
     Dates: start: 202208

REACTIONS (6)
  - Crohn^s disease [Unknown]
  - Back pain [Recovering/Resolving]
  - Sinus congestion [Unknown]
  - Discoloured vomit [Unknown]
  - Upper respiratory tract infection [Unknown]
  - Hepatic enzyme increased [Unknown]
